FAERS Safety Report 23580689 (Version 2)
Quarter: 2024Q2

REPORT INFORMATION
  Report Type: Spontaneous
  Country: US (occurrence: US)
  Receive Date: 20240229
  Receipt Date: 20240402
  Transmission Date: 20240716
  Serious: No
  Sender: FDA-Public Use
  Company Number: US-Calliditas-2024CAL00342

PATIENT
  Age: 44 Year
  Sex: Male
  Weight: 112.94 kg

DRUGS (1)
  1. TARPEYO [Suspect]
     Active Substance: BUDESONIDE
     Indication: Haematuria
     Dosage: 16MG (4MG CAPSULES) ONCE DAILY
     Route: 048
     Dates: start: 20240104

REACTIONS (4)
  - Nocturia [Unknown]
  - Insomnia [Unknown]
  - Fatigue [Unknown]
  - Myalgia [Recovered/Resolved]
